FAERS Safety Report 6750271-1 (Version None)
Quarter: 2010Q2

REPORT INFORMATION
  Report Type: 
  Country: None (occurrence: None)
  Receive Date: 20100601
  Receipt Date: 20100521
  Transmission Date: 20101027
  Serious: Yes (Life-Threatening, Hospitalization, Disabling)
  Sender: FDA-Public Use
  Company Number: GB-PFIZER INC-2010051425

PATIENT
  Age: 30 Year
  Sex: Female

DRUGS (5)
  1. AZITHROMYCIN [Suspect]
     Dosage: UNK
  2. CETIRIZINE [Concomitant]
     Dosage: 10 MG, UNK
  3. MONTELUKAST [Concomitant]
     Dosage: 10 MG, UNK
  4. SALBUTAMOL [Concomitant]
     Dosage: UNK
  5. SERETIDE [Concomitant]
     Dosage: UNK

REACTIONS (2)
  - CARDIAC ARREST [None]
  - ELECTROCARDIOGRAM QT PROLONGED [None]
